FAERS Safety Report 5866490-2 (Version None)
Quarter: 2008Q3

REPORT INFORMATION
  Report Type: 
  Country: None (occurrence: None)
  Receive Date: 20080902
  Receipt Date: 20080902
  Transmission Date: 20090109
  Serious: Yes (Hospitalization)
  Sender: FDA-Public Use
  Company Number: PHEH1995US01289

PATIENT
  Sex: Male
  Weight: 93 kg

DRUGS (7)
  1. SANDIMMUNE [Suspect]
     Route: 048
     Dates: start: 19950718, end: 19951025
  2. BACTRIM DS [Concomitant]
  3. ZANTAC [Concomitant]
  4. MAGNESIUM OXIDE (MAGNESIUM OXIDE) [Concomitant]
  5. CALCIUM CARBONATE (CALCIUM CARBONATE) [Concomitant]
  6. NYSTATIN [Concomitant]
  7. TYLOX (TYLOX) [Concomitant]

REACTIONS (2)
  - INFECTION [None]
  - PYREXIA [None]
